FAERS Safety Report 21969586 (Version 1)
Quarter: 2023Q1

REPORT INFORMATION
  Report Type: Spontaneous
  Country: US (occurrence: US)
  Receive Date: 20230208
  Receipt Date: 20230208
  Transmission Date: 20230418
  Serious: No
  Sender: FDA-Public Use
  Company Number: US-CLARUS THERAPEUTICS, INC.-2023-JATENZO-000084

PATIENT

DRUGS (2)
  1. JATENZO [Suspect]
     Active Substance: TESTOSTERONE UNDECANOATE
     Indication: Blood testosterone decreased
     Dosage: UNK UNK, BID
     Route: 048
     Dates: start: 2021, end: 2022
  2. JATENZO [Suspect]
     Active Substance: TESTOSTERONE UNDECANOATE
     Dosage: 2 DOSAGE FORM, BID
     Route: 048
     Dates: start: 1955

REACTIONS (1)
  - Blood testosterone free increased [Not Recovered/Not Resolved]

NARRATIVE: CASE EVENT DATE: 20220101
